FAERS Safety Report 8990791 (Version 1)
Quarter: 2012Q4

REPORT INFORMATION
  Report Type: Spontaneous
  Country: US (occurrence: None)
  Receive Date: 20121226
  Receipt Date: 20121226
  Transmission Date: 20130627
  Serious: No
  Sender: FDA-Public Use
  Company Number: None

PATIENT
  Age: 47 Year
  Sex: Male

DRUGS (1)
  1. ZELBORAF [Suspect]
     Dosage: 4 TABLETS BID PO
     Route: 048

REACTIONS (4)
  - Chest pain [None]
  - Arthralgia [None]
  - Renal pain [None]
  - Headache [None]
